FAERS Safety Report 11840013 (Version 2)
Quarter: 2016Q3

REPORT INFORMATION
  Report Type: Spontaneous
  Country: US (occurrence: US)
  Receive Date: 20151216
  Receipt Date: 20160810
  Transmission Date: 20161109
  Serious: No
  Sender: FDA-Public Use
  Company Number: US-ASTRAZENECA-2015SF22664

PATIENT
  Sex: Female

DRUGS (1)
  1. TUDORZA PRESSAIR [Suspect]
     Active Substance: ACLIDINIUM BROMIDE
     Dosage: 1 PUFF IN THE MORNING
     Route: 055

REACTIONS (5)
  - Product quality issue [Unknown]
  - Off label use [Unknown]
  - Wheezing [Not Recovered/Not Resolved]
  - Drug dose omission [Unknown]
  - Hypoacusis [Not Recovered/Not Resolved]
